FAERS Safety Report 13575910 (Version 3)
Quarter: 2017Q3

REPORT INFORMATION
  Report Type: Report from Study
  Country: US (occurrence: US)
  Receive Date: 20170524
  Receipt Date: 20170802
  Transmission Date: 20171127
  Serious: Yes (Other)
  Sender: FDA-Public Use
  Company Number: PHEH2017US015369

PATIENT
  Sex: Male
  Weight: 67.12 kg

DRUGS (1)
  1. ENTRESTO [Suspect]
     Active Substance: SACUBITRIL\VALSARTAN
     Indication: EJECTION FRACTION DECREASED
     Dosage: 50 MG BID (24/26 MG)
     Route: 048
     Dates: start: 20170515, end: 20170518

REACTIONS (3)
  - Presyncope [Unknown]
  - Dizziness [Unknown]
  - Hypotension [Unknown]
